FAERS Safety Report 5453634-X (Version None)
Quarter: 2007Q3

REPORT INFORMATION
  Report Type: 
  Country: None (occurrence: None)
  Receive Date: 20070917
  Receipt Date: 20070906
  Transmission Date: 20080115
  Serious: Yes (Other)
  Sender: FDA-Public Use
  Company Number: US-JNJFOC-20070901970

PATIENT
  Sex: Male
  Weight: 58.97 kg

DRUGS (4)
  1. REMICADE [Suspect]
     Indication: COLITIS ULCERATIVE
     Dosage: 3 VIALS
  2. AMINOSALICYLIC ACID [Concomitant]
     Dosage: FOR 6 MONTHS
  3. 6 MP [Concomitant]
     Dosage: FOR 6 MONTHS
  4. PREDNISONE [Concomitant]
     Dosage: LESS THAN 3 MONTHS

REACTIONS (1)
  - LISTERIOSIS [None]
